FAERS Safety Report 9580773 (Version 1)
Quarter: 2013Q4

REPORT INFORMATION
  Report Type: Spontaneous
  Country: US (occurrence: US)
  Receive Date: 20131002
  Receipt Date: 20131002
  Transmission Date: 20140711
  Serious: No
  Sender: FDA-Public Use
  Company Number: US-ASTRAZENECA-2013SE70922

PATIENT
  Age: 63 Year
  Sex: Female

DRUGS (4)
  1. BRILINTA [Suspect]
     Indication: ACUTE CORONARY SYNDROME
     Route: 048
     Dates: start: 201306, end: 20130917
  2. ASPIRIN [Concomitant]
     Indication: ADJUVANT THERAPY
     Dosage: 81 MG. UNK
  3. AMIODARONE [Concomitant]
     Dosage: UNKNOWN UNK
     Dates: end: 20130917
  4. ATORVASTATIN [Concomitant]
     Dates: end: 20130917

REACTIONS (1)
  - Hepatic enzyme increased [Not Recovered/Not Resolved]
